FAERS Safety Report 13630752 (Version 1)
Quarter: 2017Q2

REPORT INFORMATION
  Report Type: Spontaneous
  Country: US (occurrence: US)
  Receive Date: 20170531
  Receipt Date: 20170531
  Transmission Date: 20170830
  Serious: No
  Sender: FDA-Public Use
  Company Number: US-ASTELLAS-1327030

PATIENT
  Age: 69 Year
  Sex: Female

DRUGS (2)
  1. TARCEVA [Suspect]
     Active Substance: ERLOTINIB HYDROCHLORIDE
     Indication: LUNG NEOPLASM MALIGNANT
     Dosage: FREQUENCY-DAILY.
     Route: 048
     Dates: start: 20131014, end: 20131227
  2. CARVEDILOL. [Concomitant]
     Active Substance: CARVEDILOL
     Dosage: FREQUENCY-DAILY
     Route: 048

REACTIONS (2)
  - Drug effect decreased [Unknown]
  - Disease progression [Unknown]

NARRATIVE: CASE EVENT DATE: 20131227
